FAERS Safety Report 9168887 (Version 1)
Quarter: 2013Q1

REPORT INFORMATION
  Report Type: Spontaneous
  Country: US (occurrence: None)
  Receive Date: 20130305
  Receipt Date: 20130305
  Transmission Date: 20140127
  Serious: Yes (Hospitalization, Disabling)
  Sender: FDA-Public Use
  Company Number: AUR_APL_2013-01793

PATIENT
  Age: 38 Year
  Sex: Female

DRUGS (2)
  1. RIBAVIRIN (RIBAVIRIN) [Suspect]
     Indication: CHRONIC HEPATITIS C
  2. INTERFERON ALFA-2A [Suspect]
     Indication: CHRONIC HEPATITIS C

REACTIONS (6)
  - Pyramidal tract syndrome [None]
  - Abasia [None]
  - Muscle spasticity [None]
  - Nuclear magnetic resonance imaging brain abnormal [None]
  - Musculoskeletal disorder [None]
  - Paresis [None]
